APPROVED DRUG PRODUCT: MAGNACORT
Active Ingredient: HYDROCORTAMATE HYDROCHLORIDE
Strength: 0.5%
Dosage Form/Route: OINTMENT;TOPICAL
Application: N010554 | Product #001
Applicant: PFIZER LABORATORIES DIV PFIZER INC
Approved: Approved Prior to Jan 1, 1982 | RLD: No | RS: No | Type: DISCN